FAERS Safety Report 25456347 (Version 1)
Quarter: 2025Q2

REPORT INFORMATION
  Report Type: Report from Study
  Country: US (occurrence: US)
  Receive Date: 20250619
  Receipt Date: 20250619
  Transmission Date: 20250717
  Serious: Yes (Hospitalization)
  Sender: ABBVIE
  Company Number: US-ABBVIE-6332619

PATIENT
  Age: 65 Year
  Sex: Female

DRUGS (1)
  1. RINVOQ [Suspect]
     Active Substance: UPADACITINIB
     Indication: Rheumatoid arthritis
     Dosage: DOSAGE: 15 UMOL/MG STRENGTH: 15MG
     Route: 048
     Dates: start: 20240824

REACTIONS (8)
  - Limb injury [Recovered/Resolved]
  - Back pain [Unknown]
  - Spinal fracture [Unknown]
  - Herpes zoster [Recovered/Resolved]
  - Contusion [Recovered/Resolved]
  - Swelling [Recovered/Resolved]
  - Wound drainage [Unknown]
  - Osteoporosis [Unknown]

NARRATIVE: CASE EVENT DATE: 20250301
